FAERS Safety Report 17756951 (Version 2)
Quarter: 2020Q2

REPORT INFORMATION
  Report Type: Spontaneous
  Country: SE (occurrence: SE)
  Receive Date: 20200507
  Receipt Date: 20200512
  Transmission Date: 20200714
  Serious: Yes (Other)
  Sender: FDA-Public Use
  Company Number: SE-ROCHE-2594216

PATIENT
  Sex: Male

DRUGS (1)
  1. TECENTRIQ [Suspect]
     Active Substance: ATEZOLIZUMAB
     Indication: LUNG NEOPLASM MALIGNANT
     Dosage: 1200 MG OR 1680 MG
     Route: 042

REACTIONS (6)
  - Pyrexia [Unknown]
  - Platelet count decreased [Unknown]
  - Confusional state [Unknown]
  - Muscle spasms [Unknown]
  - Encephalitis [Unknown]
  - Neurological symptom [Unknown]
